FAERS Safety Report 8994945 (Version 1)
Quarter: 2012Q4

REPORT INFORMATION
  Report Type: Spontaneous
  Country: US (occurrence: None)
  Receive Date: 20121228
  Receipt Date: 20121228
  Transmission Date: 20130627
  Serious: Yes (Hospitalization)
  Sender: FDA-Public Use
  Company Number: None

PATIENT
  Sex: Female

DRUGS (4)
  1. RIBASPHERE [Suspect]
     Dosage: 200mg and 400 mg BID po
     Route: 048
     Dates: start: 20120823, end: 20121227
  2. FLUCONAZOLE [Concomitant]
  3. PEGASYS [Concomitant]
  4. INCIVEK [Concomitant]

REACTIONS (2)
  - Anaemia [None]
  - Syncope [None]
